FAERS Safety Report 7595423-6 (Version None)
Quarter: 2011Q3

REPORT INFORMATION
  Report Type: 
  Country: None (occurrence: None)
  Receive Date: 20110707
  Receipt Date: 20110627
  Transmission Date: 20111222
  Serious: Yes (Hospitalization)
  Sender: FDA-Public Use
  Company Number: FR-ROCHE-786195

PATIENT
  Sex: Female

DRUGS (11)
  1. VALACYCLOVIR [Suspect]
     Route: 048
     Dates: start: 20110308, end: 20110523
  2. BACTRIM [Suspect]
     Route: 048
     Dates: start: 20110308, end: 20110530
  3. NEORAL [Concomitant]
     Route: 048
     Dates: start: 20110308
  4. OMEPRAZOLE [Suspect]
     Route: 048
     Dates: end: 20110530
  5. MYFORTIC [Concomitant]
     Route: 048
     Dates: start: 20110308, end: 20110530
  6. PREDNISOLONE [Concomitant]
     Route: 048
     Dates: end: 20110530
  7. SODIUM BICARBONATE [Concomitant]
     Dates: end: 20110512
  8. AMLODIPINE [Concomitant]
     Dates: end: 20110502
  9. FERROUS SULFATE TAB [Concomitant]
     Dates: end: 20110502
  10. ZOPICLONE [Suspect]
     Route: 048
     Dates: start: 20110519, end: 20110530
  11. TENORMIN [Concomitant]
     Route: 048

REACTIONS (2)
  - AGRANULOCYTOSIS [None]
  - LEUKOPENIA [None]
